FAERS Safety Report 7602317-6 (Version None)
Quarter: 2011Q3

REPORT INFORMATION
  Report Type: 
  Country: None (occurrence: None)
  Receive Date: 20110712
  Receipt Date: 20110705
  Transmission Date: 20111222
  Serious: Yes (Other)
  Sender: FDA-Public Use
  Company Number: US-BIOGENIDEC-2011BI013896

PATIENT
  Age: 45 Year
  Sex: Male

DRUGS (2)
  1. AVONEX [Suspect]
     Indication: MULTIPLE SCLEROSIS
     Route: 030
     Dates: start: 20000121, end: 20050121
  2. AVONEX [Suspect]
     Route: 030
     Dates: start: 20110121

REACTIONS (3)
  - LYMPHOMA [None]
  - YELLOW SKIN [None]
  - THYROID CANCER [None]
